FAERS Safety Report 7472813-3 (Version None)
Quarter: 2011Q2

REPORT INFORMATION
  Report Type: 
  Country: None (occurrence: None)
  Receive Date: 20110511
  Receipt Date: 20110503
  Transmission Date: 20111010
  Serious: Yes (Other)
  Sender: FDA-Public Use
  Company Number: US-JNJFOC-20110201182

PATIENT
  Sex: Male

DRUGS (5)
  1. LEVAQUIN [Suspect]
     Indication: SINUSITIS
     Route: 048
  2. CIPROFLAXACIN [Suspect]
     Indication: PRODUCT USED FOR UNKNOWN INDICATION
     Route: 048
  3. AVELOX [Suspect]
     Indication: SINUSITIS
     Route: 065
  4. PREDNISONE [Suspect]
     Indication: SINUSITIS
     Route: 065
  5. METHYLPEDNISOLONE SODIUM SUCCINATE [Suspect]
     Indication: PRODUCT USED FOR UNKNOWN INDICATION
     Route: 048

REACTIONS (3)
  - LIGAMENT RUPTURE [None]
  - JOINT INSTABILITY [None]
  - LIGAMENT LAXITY [None]
